FAERS Safety Report 4310897-1 (Version None)
Quarter: 2004Q1

REPORT INFORMATION
  Report Type: 
  Country: None (occurrence: None)
  Receive Date: 20040302
  Receipt Date: 20040220
  Transmission Date: 20041129
  Serious: Yes (Death)
  Sender: FDA-Public Use
  Company Number: 2004011748

PATIENT
  Age: 71 Year
  Sex: Male

DRUGS (12)
  1. DIFLUCAN [Suspect]
     Indication: BLOOD BETA-D-GLUCAN INCREASED
     Dosage: 50 MG DAILY, INTRAVENOUS
     Route: 042
     Dates: start: 20040216, end: 20040218
  2. MINOCYCLINE HYDROCHLORIDE [Concomitant]
  3. PIPERACILLIN SODIUM [Concomitant]
  4. CIPROFLOXACIN [Concomitant]
  5. HICALIQ (GLUCOSE, POTASSIUM ACETATE, CALCIUM GLUCONATE, MAGNESIUM SULF [Concomitant]
  6. MULTAMIN (VITAMINS NOS) [Concomitant]
  7. POTASSIUM CHLORIDE [Concomitant]
  8. NAFAMOSTAT  MESILATE (NAFAMOSTAT MESILATE) [Concomitant]
  9. OMEPRAZOLE [Concomitant]
  10. PROPOFOL [Concomitant]
  11. INSULIN [Concomitant]
  12. PENTAMIDINE (PENTAMIDINE) [Concomitant]

REACTIONS (1)
  - PANCYTOPENIA [None]
